FAERS Safety Report 5460374-X (Version None)
Quarter: 2007Q3

REPORT INFORMATION
  Report Type: 
  Country: None (occurrence: None)
  Receive Date: 20070919
  Receipt Date: 20070716
  Transmission Date: 20080115
  Serious: Yes (Other)
  Sender: FDA-Public Use
  Company Number: US-ASTRAZENECA-2007UW16482

PATIENT
  Age: 39 Year
  Sex: Female
  Weight: 102.3 kg

DRUGS (3)
  1. SEROQUEL [Suspect]
     Indication: INSOMNIA
     Dates: start: 19980101, end: 20070401
  2. SEROQUEL [Suspect]
     Indication: BIPOLAR DISORDER
     Dates: start: 19980101, end: 20070401
  3. ABILIFY [Concomitant]

REACTIONS (2)
  - DIABETES MELLITUS [None]
  - DIABETIC COMA [None]
